FAERS Safety Report 7820554-2 (Version None)
Quarter: 2011Q4

REPORT INFORMATION
  Report Type: 
  Country: None (occurrence: None)
  Receive Date: 20111018
  Receipt Date: 20111005
  Transmission Date: 20120403
  Serious: Yes (Hospitalization)
  Sender: FDA-Public Use
  Company Number: PHHY2011IT88815

PATIENT
  Sex: Female

DRUGS (5)
  1. VALSARTAN  AND HYDROCHLOROTHIAZIDE [Suspect]
     Indication: HYPERTENSION
     Dosage: 1 DF, 160 MG VALS AND 12.5 MG HYDR
     Route: 048
     Dates: start: 20070909, end: 20110909
  2. NEBIVOLOL HCL [Concomitant]
     Dosage: 2.5 MG, UNK
  3. VALSARTAN  AND HYDROCHLOROTHIAZIDE [Suspect]
     Dosage: 1 DF, 320 MG VALS AND 25 MG HYDR
     Route: 048
     Dates: start: 20110910, end: 20110925
  4. ASPIRIN [Concomitant]
  5. POTASSIUM CHLORIDE [Concomitant]
     Dosage: 600 MG, UNK

REACTIONS (3)
  - HYPONATRAEMIA [None]
  - BALANCE DISORDER [None]
  - VOMITING [None]
